FAERS Safety Report 7859401-1 (Version None)
Quarter: 2011Q4

REPORT INFORMATION
  Report Type: 
  Country: None (occurrence: None)
  Receive Date: 20111027
  Receipt Date: 20111018
  Transmission Date: 20120403
  Serious: No
  Sender: FDA-Public Use
  Company Number: US-B.I. PHARMACEUTICALS,INC./RIDGEFIELD-2011-BP-24516BP

PATIENT
  Sex: Female

DRUGS (2)
  1. MIRAPEX [Suspect]
     Indication: LIBIDO DECREASED
     Dates: start: 20090101, end: 20091101
  2. MIRAPEX [Suspect]
     Indication: ADVERSE DRUG REACTION

REACTIONS (4)
  - CONFUSIONAL STATE [None]
  - LIBIDO DECREASED [None]
  - SEXUAL DYSFUNCTION [None]
  - ANHEDONIA [None]
